FAERS Safety Report 22128508 (Version 1)
Quarter: 2023Q1

REPORT INFORMATION
  Report Type: Other
  Country: US (occurrence: None)
  Receive Date: 20230323
  Receipt Date: 20230323
  Transmission Date: 20230418
  Serious: Yes (Other)
  Sender: FDA-Public Use
  Company Number: US-ROCHE-3312008

PATIENT
  Age: 21 Month
  Sex: Female

DRUGS (21)
  1. TOCILIZUMAB [Suspect]
     Active Substance: TOCILIZUMAB
     Indication: Still^s disease
     Route: 042
     Dates: start: 201712
  2. TOCILIZUMAB [Suspect]
     Active Substance: TOCILIZUMAB
     Indication: Haemophagocytic lymphohistiocytosis
  3. MYCOPHENOLATE MOFETIL [Suspect]
     Active Substance: MYCOPHENOLATE MOFETIL
     Indication: Prophylaxis against graft versus host disease
     Route: 065
  4. FLUDARABINE [Suspect]
     Active Substance: FLUDARABINE PHOSPHATE
     Indication: Prophylaxis against transplant rejection
     Dosage: DAYS -7 TO -3
     Route: 065
  5. MELPHALAN [Suspect]
     Active Substance: MELPHALAN
     Indication: Prophylaxis against transplant rejection
     Dosage: DAY -2
     Route: 065
  6. THIOTEPA [Suspect]
     Active Substance: THIOTEPA
     Indication: Prophylaxis against transplant rejection
     Dosage: DAY -3
     Route: 065
  7. ALEMTUZUMAB [Suspect]
     Active Substance: ALEMTUZUMAB
     Indication: Prophylaxis against transplant rejection
     Dosage: DAYS -14 TO -10
     Route: 065
  8. TACROLIMUS [Suspect]
     Active Substance: TACROLIMUS
     Indication: Prophylaxis against graft versus host disease
     Route: 065
  9. METHYLPREDNISOLONE [Concomitant]
     Active Substance: METHYLPREDNISOLONE
     Route: 042
     Dates: start: 201701
  10. METHYLPREDNISOLONE [Concomitant]
     Active Substance: METHYLPREDNISOLONE
     Dosage: PULSE DOSE
     Route: 042
  11. PREDNISOLONE [Concomitant]
     Active Substance: PREDNISOLONE
     Route: 048
     Dates: start: 201712
  12. PREDNISOLONE [Concomitant]
     Active Substance: PREDNISOLONE
     Dosage: BETWEEN 0.5 AND 1 MG/KG/D
     Route: 048
  13. ANAKINRA [Concomitant]
     Active Substance: ANAKINRA
     Dates: start: 201806
  14. ANAKINRA [Concomitant]
     Active Substance: ANAKINRA
  15. ANAKINRA [Concomitant]
     Active Substance: ANAKINRA
  16. METHOTREXATE [Concomitant]
     Active Substance: METHOTREXATE
     Route: 058
     Dates: start: 201901
  17. CANAKINUMAB [Concomitant]
     Active Substance: CANAKINUMAB
  18. EMAPALUMAB [Concomitant]
     Active Substance: EMAPALUMAB
     Indication: Still^s disease
     Dosage: LOADING DOSE
  19. EMAPALUMAB [Concomitant]
     Active Substance: EMAPALUMAB
     Dosage: FOR SIX DOSES
  20. VALGANCICLOVIR [Concomitant]
     Active Substance: VALGANCICLOVIR
     Indication: Cytomegalovirus infection
  21. FOSCARNET [Concomitant]
     Active Substance: FOSCARNET
     Indication: Cytomegalovirus infection

REACTIONS (10)
  - Engraftment syndrome [Unknown]
  - Cytomegalovirus infection reactivation [Unknown]
  - Infusion related reaction [Unknown]
  - Mucosal inflammation [Unknown]
  - Gastroenteritis [Unknown]
  - Thrombocytopenia [Unknown]
  - Hypervolaemia [Unknown]
  - Hypertension [Unknown]
  - Hypertransaminasaemia [Unknown]
  - Hypogammaglobulinaemia [Unknown]
